FAERS Safety Report 8774055 (Version 1)
Quarter: 2012Q4

REPORT INFORMATION
  Report Type: Report from Study
  Country: JP (occurrence: JP)
  Receive Date: 20120907
  Receipt Date: 20120907
  Transmission Date: 20130627
  Serious: Yes (Other)
  Sender: FDA-Public Use
  Company Number: JP-VERTEX PHARMACEUTICAL INC.-2012-020687

PATIENT
  Age: 59 Year
  Sex: Male

DRUGS (11)
  1. VX-950 [Suspect]
     Indication: HEPATITIS C
     Dosage: 2250 mg, qd
     Route: 048
     Dates: start: 20120718, end: 20120720
  2. VX-950 [Suspect]
     Dosage: 1500 mg, qd
     Route: 048
     Dates: start: 20120721
  3. RIBAVIRIN [Suspect]
     Indication: HEPATITIS C
     Dosage: 600 mg, qd
     Route: 048
     Dates: start: 20120718, end: 20120807
  4. RIBAVIRIN [Suspect]
     Dosage: 400 mg, qd
     Route: 048
     Dates: start: 20120808, end: 20120814
  5. RIBAVIRIN [Suspect]
     Dosage: 200 mg, qd
     Route: 048
     Dates: start: 20120815
  6. PEGINTERFERON ALFA-2B [Suspect]
     Indication: HEPATITIS C
     Dosage: 1.5 UNK, UNK
     Route: 058
     Dates: start: 20120718
  7. ALLELOCK [Concomitant]
     Dosage: 10 mg, qd
     Route: 048
  8. ALLELOCK [Concomitant]
     Dosage: UNK
  9. OLMETEC [Concomitant]
     Dosage: 40 mg, qd
     Route: 048
     Dates: start: 20120718
  10. TANATRIL [Concomitant]
     Dosage: 5 mg, qd
     Route: 048
     Dates: start: 20120718
  11. ALOSITOL [Concomitant]
     Dosage: 200 mg, qd
     Route: 048

REACTIONS (1)
  - Renal disorder [Recovered/Resolved]
